FAERS Safety Report 9055344 (Version 3)
Quarter: 2013Q3

REPORT INFORMATION
  Report Type: Report from Study
  Country: BR (occurrence: BR)
  Receive Date: 20130206
  Receipt Date: 20130814
  Transmission Date: 20140515
  Serious: Yes (Hospitalization, Other)
  Sender: FDA-Public Use
  Company Number: BR-ROCHE-1186937

PATIENT
  Sex: Female
  Weight: 96 kg

DRUGS (13)
  1. MABTHERA [Suspect]
     Indication: RHEUMATOID ARTHRITIS
     Route: 065
     Dates: start: 20090601, end: 2012
  2. BACTRIM [Concomitant]
     Route: 065
  3. OMEPRAZOLE [Concomitant]
  4. LOSARTAN [Concomitant]
     Route: 065
  5. ATENOLOL [Concomitant]
  6. HYDROCHLOROTHIAZIDE [Concomitant]
  7. PREDNISONE [Concomitant]
     Route: 065
  8. CALCIUM CARBONATE [Concomitant]
  9. SIMVASTATIN [Concomitant]
     Route: 065
  10. AMITRIPTYLINE [Concomitant]
     Route: 065
  11. ADEROGIL D3 [Concomitant]
  12. AZATHIOPRINE [Concomitant]
  13. PARACETAMOL [Concomitant]

REACTIONS (3)
  - Fall [Unknown]
  - Fractured coccyx [Not Recovered/Not Resolved]
  - Haematochezia [Not Recovered/Not Resolved]
